FAERS Safety Report 20490917 (Version 1)
Quarter: 2022Q1

REPORT INFORMATION
  Report Type: Spontaneous
  Country: US (occurrence: US)
  Receive Date: 20220218
  Receipt Date: 20220218
  Transmission Date: 20220423
  Serious: Yes (Other)
  Sender: FDA-Public Use
  Company Number: US-AMGEN-USASP2022028093

PATIENT
  Sex: Female

DRUGS (12)
  1. OTEZLA [Suspect]
     Active Substance: APREMILAST
     Indication: Psoriatic arthropathy
     Dosage: 30 MILLIGRAM
     Route: 048
  2. ENBREL [Suspect]
     Active Substance: ETANERCEPT
     Indication: Product used for unknown indication
     Dosage: 25 MILLIGRAM
     Route: 065
  3. ACYCLOVIR [Concomitant]
     Active Substance: ACYCLOVIR
     Dosage: 400 MILLIGRAM
  4. BENZONATATE [Concomitant]
     Active Substance: BENZONATATE
     Dosage: 100 MILLIGRAM
  5. CYCLOBENZAPRINE [Concomitant]
     Active Substance: CYCLOBENZAPRINE
     Dosage: 10 MILLIGRAM
  6. DULOXETINE [Concomitant]
     Active Substance: DULOXETINE
     Dosage: 60 MILLIGRAM
  7. FLUCONAZOLE [Concomitant]
     Active Substance: FLUCONAZOLE
     Dosage: 100 MILLIGRAM
  8. IBUPROFEN [Concomitant]
     Active Substance: IBUPROFEN
     Dosage: 800 MILLIGRAM
  9. METHYLPREDNISOLONE [Concomitant]
     Active Substance: METHYLPREDNISOLONE
     Dosage: 4 MILLIGRAM
  10. NAPROXEN [Concomitant]
     Active Substance: NAPROXEN
     Dosage: 500 MILLIGRAM
  11. OZEMPIC [Concomitant]
     Active Substance: SEMAGLUTIDE
     Dosage: UNK (2/1.5ML)
  12. TRIAMCINOLONE ACETONIDE [Concomitant]
     Active Substance: TRIAMCINOLONE ACETONIDE

REACTIONS (2)
  - Psoriatic arthropathy [Not Recovered/Not Resolved]
  - Drug hypersensitivity [Unknown]
